FAERS Safety Report 18224993 (Version 2)
Quarter: 2020Q3

REPORT INFORMATION
  Report Type: Spontaneous
  Country: PH (occurrence: PH)
  Receive Date: 20200903
  Receipt Date: 20200921
  Transmission Date: 20201103
  Serious: Yes (Other)
  Sender: FDA-Public Use
  Company Number: PH-ROCHE-2667898

PATIENT
  Age: 60 Year
  Sex: Male
  Weight: 85 kg

DRUGS (4)
  1. ACTEMRA [Suspect]
     Active Substance: TOCILIZUMAB
     Indication: RESPIRATORY TRACT INFECTION
     Dosage: SECOND DOSE
     Route: 041
     Dates: start: 20200528, end: 20200528
  2. ACTEMRA [Suspect]
     Active Substance: TOCILIZUMAB
     Indication: COVID-19
     Dosage: 400 MG ONE DOSE
     Route: 041
     Dates: start: 20200526, end: 20200526
  3. ACTEMRA [Suspect]
     Active Substance: TOCILIZUMAB
     Indication: PNEUMONIA
  4. NOREPINEPHRINE. [Concomitant]
     Active Substance: NOREPINEPHRINE

REACTIONS (4)
  - Blood urea increased [Unknown]
  - Hypoxia [Recovering/Resolving]
  - Off label use [Unknown]
  - Intentional product use issue [Unknown]
